FAERS Safety Report 9816296 (Version 2)
Quarter: 2014Q1

REPORT INFORMATION
  Report Type: Spontaneous
  Country: US (occurrence: US)
  Receive Date: 20140114
  Receipt Date: 20140117
  Transmission Date: 20141002
  Serious: Yes (Other)
  Sender: FDA-Public Use
  Company Number: US-RB-061732-14

PATIENT
  Age: 74 Year
  Sex: Male

DRUGS (1)
  1. MUCINEX DM MAXIMUM STRENGTH [Suspect]
     Indication: PRODUCT USED FOR UNKNOWN INDICATION
     Dosage: LAST USED ON 31-DEC-2013 AT 6 AM
     Route: 048
     Dates: start: 20131230

REACTIONS (4)
  - Blood pressure decreased [Recovered/Resolved]
  - Presyncope [Recovered/Resolved]
  - Heart rate decreased [Recovered/Resolved]
  - Pallor [Recovered/Resolved]
